FAERS Safety Report 8761815 (Version 2)
Quarter: 2012Q4

REPORT INFORMATION
  Report Type: Spontaneous
  Country: DE (occurrence: None)
  Receive Date: 20120823
  Receipt Date: 20120924
  Transmission Date: 20130627
  Serious: Yes (Hospitalization)
  Sender: FDA-Public Use
  Company Number: ACO_31552_2012

PATIENT
  Age: 38 Year
  Sex: Female

DRUGS (3)
  1. FAMPYRA [Suspect]
     Indication: MULTIPLE SCLEROSIS
     Route: 048
     Dates: start: 20120515, end: 20120803
  2. AVONEX (INTERFERON BETA-1A) [Concomitant]
  3. COPAXONE (GLATIRAMER ACETATE) [Concomitant]

REACTIONS (2)
  - Rash [None]
  - Drug hypersensitivity [None]
